FAERS Safety Report 4586115-6 (Version None)
Quarter: 2005Q1

REPORT INFORMATION
  Report Type: 
  Country: None (occurrence: None)
  Receive Date: 20050125
  Receipt Date: 20041018
  Transmission Date: 20050727
  Serious: No
  Sender: FDA-Public Use
  Company Number: USA041081342

PATIENT
  Sex: Female
  Weight: 80 kg

DRUGS (6)
  1. FORTEO [Suspect]
     Indication: OSTEOPOROSIS
     Dosage: 20 MG/1 DAY
     Dates: start: 20040923, end: 20041001
  2. APO-METOPROLOL (METOPROLOL TARTRATE) [Concomitant]
  3. CATAPRES-TTS-1 [Concomitant]
  4. ACCURETIC [Concomitant]
  5. NORVASC [Concomitant]
  6. LAXATIVE [Concomitant]

REACTIONS (4)
  - ANXIETY [None]
  - FEELING ABNORMAL [None]
  - HYPERTENSION [None]
  - INSOMNIA [None]
